FAERS Safety Report 6036447-X (Version None)
Quarter: 2009Q1

REPORT INFORMATION
  Report Type: 
  Country: None (occurrence: None)
  Receive Date: 20090112
  Receipt Date: 20090106
  Transmission Date: 20090719
  Serious: Yes (Hospitalization)
  Sender: FDA-Public Use
  Company Number: A0759559A

PATIENT
  Age: 53 Year
  Sex: Male

DRUGS (1)
  1. ASPIRIN + CAFFEINE + PARACETAMOL (GOODY'S) [Suspect]
     Indication: HEADACHE
     Dosage: SEE DOSAGE TEXT / ORAL
     Route: 048
     Dates: start: 20081001, end: 20081001

REACTIONS (7)
  - ABDOMINAL DISCOMFORT [None]
  - DRUG INEFFECTIVE [None]
  - GASTRIC PERFORATION [None]
  - INAPPROPRIATE SCHEDULE OF DRUG ADMINISTRATION [None]
  - INCORRECT DOSE ADMINISTERED [None]
  - MOTION SICKNESS [None]
  - PROCEDURAL PAIN [None]
